FAERS Safety Report 19706371 (Version 1)
Quarter: 2021Q3

REPORT INFORMATION
  Report Type: Spontaneous
  Country: US (occurrence: US)
  Receive Date: 20210816
  Receipt Date: 20210816
  Transmission Date: 20211014
  Serious: Yes (Death)
  Sender: FDA-Public Use
  Company Number: None

PATIENT
  Age: 77 Year
  Sex: Male
  Weight: 123 kg

DRUGS (1)
  1. TOCILIZUMAB (TOCILIZUMAB 20MG/ML INJ,SOLN,20ML) [Suspect]
     Active Substance: TOCILIZUMAB
     Indication: COVID-19
     Route: 042
     Dates: start: 20210805, end: 20210805

REACTIONS (3)
  - General physical health deterioration [None]
  - Brain injury [None]
  - Pulseless electrical activity [None]

NARRATIVE: CASE EVENT DATE: 20210811
